FAERS Safety Report 17260646 (Version 1)
Quarter: 2020Q1

REPORT INFORMATION
  Report Type: Other
  Country: ES (occurrence: ES)
  Receive Date: 20200113
  Receipt Date: 20200113
  Transmission Date: 20200409
  Serious: Yes (Death)
  Sender: FDA-Public Use
  Company Number: ES-DEXPHARM-20200015

PATIENT
  Age: 45 Year
  Sex: Male

DRUGS (5)
  1. VENLAFAXINE [Suspect]
     Active Substance: VENLAFAXINE HYDROCHLORIDE
  2. MIRTAZAPINE. [Interacting]
     Active Substance: MIRTAZAPINE
  3. ALPRAZOLAM. [Interacting]
     Active Substance: ALPRAZOLAM
  4. CLOTIAPINE [Interacting]
     Active Substance: CLOTHIAPINE
  5. ALCOHOL. [Interacting]
     Active Substance: ALCOHOL

REACTIONS (2)
  - Poisoning [Fatal]
  - Drug interaction [Fatal]
